FAERS Safety Report 8391371-2 (Version None)
Quarter: 2012Q2

REPORT INFORMATION
  Report Type: 
  Country: None (occurrence: None)
  Receive Date: 20120529
  Receipt Date: 20120522
  Transmission Date: 20120825
  Serious: Yes (Hospitalization)
  Sender: FDA-Public Use
  Company Number: US-BAYER-2012-022078

PATIENT
  Age: 27 Year
  Sex: Female
  Weight: 89.796 kg

DRUGS (10)
  1. ROBAXIN [Concomitant]
  2. YASMIN [Suspect]
     Indication: PRODUCT USED FOR UNKNOWN INDICATION
     Dosage: UNK
     Dates: start: 20040501, end: 20100417
  3. DROSPIRENONE AND ETHINYL ESTRADIOL [Suspect]
     Indication: PRODUCT USED FOR UNKNOWN INDICATION
     Dosage: UNK
     Dates: start: 20040501, end: 20100417
  4. HYDROCODONE BITARTRATE [Concomitant]
  5. METOPROLOL TARTRATE [Concomitant]
  6. METHOCARBAMOL [Concomitant]
  7. PHENERGAN [Concomitant]
  8. ZITHROMAX [Concomitant]
  9. ZANTAC [Concomitant]
  10. VICODIN [Concomitant]

REACTIONS (6)
  - PAIN [None]
  - PULMONARY EMBOLISM [None]
  - DYSPNOEA [None]
  - INJURY [None]
  - EMOTIONAL DISTRESS [None]
  - NON-CARDIAC CHEST PAIN [None]
